FAERS Safety Report 23205827 (Version 1)
Quarter: 2023Q4

REPORT INFORMATION
  Report Type: Report from Study
  Country: TH (occurrence: TH)
  Receive Date: 20231120
  Receipt Date: 20231120
  Transmission Date: 20240109
  Serious: Yes (Hospitalization)
  Sender: FDA-Public Use
  Company Number: TH-002147023-NVSC2023TH197015

PATIENT
  Age: 41 Year
  Sex: Female
  Weight: 58 kg

DRUGS (3)
  1. TASIGNA [Suspect]
     Active Substance: NILOTINIB
     Indication: Philadelphia positive chronic myeloid leukaemia
     Dosage: 400 MG, BID
     Route: 048
     Dates: start: 20110809, end: 20230830
  2. TASIGNA [Suspect]
     Active Substance: NILOTINIB
     Dosage: UNK (DOSE REDUCED)
     Route: 065
     Dates: start: 20230901
  3. ATENOLOL [Concomitant]
     Active Substance: ATENOLOL
     Indication: Hypertension
     Dosage: 500 MG, QD
     Route: 048
     Dates: start: 20180424

REACTIONS (3)
  - Dysarthria [Recovered/Resolved]
  - Ischaemic stroke [Recovering/Resolving]
  - Headache [Recovered/Resolved]

NARRATIVE: CASE EVENT DATE: 20230831
